FAERS Safety Report 7553631-4 (Version None)
Quarter: 2011Q2

REPORT INFORMATION
  Report Type: 
  Country: None (occurrence: None)
  Receive Date: 20110614
  Receipt Date: 20110614
  Transmission Date: 20111010
  Serious: Yes (Life-Threatening, Hospitalization)
  Sender: FDA-Public Use
  Company Number: None

PATIENT
  Age: 63 Year
  Sex: Female
  Weight: 74.8435 kg

DRUGS (2)
  1. LAMOTRIGINE [Suspect]
     Indication: DEPRESSION
     Dosage: 25MG ONCE/DAY PO
     Route: 048
     Dates: start: 20100402, end: 20100408
  2. LAMOTRIGINE [Suspect]
     Dosage: 25MG TWO TIMES/DAY PO
     Route: 048
     Dates: start: 20100409, end: 20100421

REACTIONS (9)
  - MULTI-ORGAN FAILURE [None]
  - BLINDNESS [None]
  - CORNEAL SCAR [None]
  - CORNEAL PERFORATION [None]
  - HYPERTROPHIC SCAR [None]
  - KERATITIS [None]
  - TOXIC EPIDERMAL NECROLYSIS [None]
  - HYPOTENSION [None]
  - STEVENS-JOHNSON SYNDROME [None]
